FAERS Safety Report 24672776 (Version 2)
Quarter: 2024Q4

REPORT INFORMATION
  Report Type: Spontaneous
  Country: FR (occurrence: FR)
  Receive Date: 20241128
  Receipt Date: 20241202
  Transmission Date: 20250115
  Serious: Yes (Death)
  Sender: UCB
  Company Number: None

PATIENT
  Age: 78 Year
  Sex: Female
  Weight: 70 kg

DRUGS (1)
  1. CERTOLIZUMAB PEGOL [Suspect]
     Active Substance: CERTOLIZUMAB PEGOL
     Indication: Rheumatoid arthritis
     Dosage: 200MG/14J
     Route: 058
     Dates: start: 20230928

REACTIONS (2)
  - Hemiparesis [Fatal]
  - Glioblastoma [Fatal]

NARRATIVE: CASE EVENT DATE: 20240120
